FAERS Safety Report 7861684-9 (Version None)
Quarter: 2011Q4

REPORT INFORMATION
  Report Type: 
  Country: None (occurrence: None)
  Receive Date: 20111027
  Receipt Date: 20111017
  Transmission Date: 20120403
  Serious: Yes (Death, Other)
  Sender: FDA-Public Use
  Company Number: US-CELGENEUS-163-21660-11102017

PATIENT

DRUGS (2)
  1. ABRAXANE [Suspect]
     Indication: PANCREATIC CARCINOMA
     Dosage: 100,125, OR 150MG/M2
     Route: 041
  2. GEMCITABINE [Suspect]
     Dosage: 1000 MILLIGRAM/SQ. METER
     Route: 065

REACTIONS (10)
  - SEPSIS [None]
  - FEBRILE NEUTROPENIA [None]
  - FATIGUE [None]
  - LEUKOPENIA [None]
  - PERIPHERAL SENSORY NEUROPATHY [None]
  - NAUSEA [None]
  - NEUTROPENIA [None]
  - ALOPECIA [None]
  - THROMBOCYTOPENIA [None]
  - ANAEMIA [None]
